FAERS Safety Report 12909003 (Version 1)
Quarter: 2016Q4

REPORT INFORMATION
  Report Type: Spontaneous
  Country: US (occurrence: US)
  Receive Date: 20161103
  Receipt Date: 20161103
  Transmission Date: 20170207
  Serious: No
  Sender: FDA-Public Use
  Company Number: US-JAZZ-2016-US-016710

PATIENT
  Age: 39 Year
  Sex: Female

DRUGS (14)
  1. XYREM [Suspect]
     Active Substance: SODIUM OXYBATE
     Indication: NARCOLEPSY
     Dosage: 2.25 G, BID
     Route: 048
     Dates: start: 201608, end: 201608
  2. CLARITIN [Concomitant]
     Active Substance: LORATADINE
  3. MULTIVITAMINS [Concomitant]
     Active Substance: VITAMINS
  4. MILK THISTLE EXTRACT [Concomitant]
  5. XYREM [Suspect]
     Active Substance: SODIUM OXYBATE
     Dosage: 3 G, BID
     Route: 048
     Dates: start: 201608, end: 201608
  6. XYREM [Suspect]
     Active Substance: SODIUM OXYBATE
     Dosage: 3.75 G, BID
     Route: 048
     Dates: start: 201608
  7. PROVIGIL [Concomitant]
     Active Substance: MODAFINIL
  8. SINGULAIR [Concomitant]
     Active Substance: MONTELUKAST SODIUM
  9. ASHWAGANDHA [Concomitant]
     Active Substance: HERBALS
  10. FLONASE ALLERGY RLF [Concomitant]
  11. MULTILEX T+M MINERALS [Concomitant]
  12. ZYRTEC [Concomitant]
     Active Substance: CETIRIZINE HYDROCHLORIDE
  13. NEURO [Concomitant]
  14. PRILOSEC [Concomitant]
     Active Substance: OMEPRAZOLE MAGNESIUM

REACTIONS (1)
  - Nasal congestion [Recovering/Resolving]

NARRATIVE: CASE EVENT DATE: 201608
